FAERS Safety Report 22243125 (Version 3)
Quarter: 2023Q2

REPORT INFORMATION
  Report Type: Spontaneous
  Country: JP (occurrence: JP)
  Receive Date: 20230424
  Receipt Date: 20230515
  Transmission Date: 20230721
  Serious: Yes (Disabling)
  Sender: FDA-Public Use
  Company Number: JP-AMGEN-JPNSP2023068031

PATIENT
  Sex: Male

DRUGS (1)
  1. BLINCYTO [Suspect]
     Active Substance: BLINATUMOMAB
     Indication: Acute lymphocytic leukaemia
     Dosage: 28 MICROGRAM, QD
     Route: 042
     Dates: start: 202303, end: 202304

REACTIONS (1)
  - Acute lymphocytic leukaemia recurrent [Not Recovered/Not Resolved]

NARRATIVE: CASE EVENT DATE: 20230401
